FAERS Safety Report 9199672 (Version 1)
Quarter: 2013Q1

REPORT INFORMATION
  Report Type: Spontaneous
  Country: US (occurrence: None)
  Receive Date: 20130327
  Receipt Date: 20130327
  Transmission Date: 20140127
  Serious: No
  Sender: FDA-Public Use
  Company Number: None

PATIENT
  Age: 52 Year
  Sex: Female
  Weight: 104.33 kg

DRUGS (2)
  1. VALSARTAN / HCTZ [Suspect]
     Dosage: 1 TAB DAILY
  2. VALSARTAN / HCTZ [Suspect]
     Indication: HYPERTENSION
     Dosage: 1 TAB DAILY

REACTIONS (1)
  - Burning sensation [None]
